FAERS Safety Report 18312220 (Version 1)
Quarter: 2020Q3

REPORT INFORMATION
  Report Type: Spontaneous
  Country: US (occurrence: US)
  Receive Date: 20200924
  Receipt Date: 20200924
  Transmission Date: 20201103
  Serious: Yes (Hospitalization)
  Sender: FDA-Public Use
  Company Number: None

PATIENT
  Age: 66 Year
  Sex: Male
  Weight: 60.78 kg

DRUGS (1)
  1. PACLITAXEL (PACLITAXEL 300MG/50ML INJ, VIL, 50ML) [Suspect]
     Active Substance: PACLITAXEL
     Indication: RECTAL CANCER METASTATIC
     Route: 042
     Dates: start: 20200131, end: 20200228

REACTIONS (10)
  - Rash [None]
  - Flushing [None]
  - Feeling hot [None]
  - Anxiety [None]
  - Dyspnoea [None]
  - Erythema [None]
  - Tachypnoea [None]
  - Stridor [None]
  - Cough [None]
  - Tachycardia [None]

NARRATIVE: CASE EVENT DATE: 20200228
